FAERS Safety Report 4408151-2 (Version None)
Quarter: 2004Q2

REPORT INFORMATION
  Report Type: 
  Country: None (occurrence: None)
  Receive Date: 20040618
  Receipt Date: 20040323
  Transmission Date: 20050107
  Serious: No
  Sender: FDA-Public Use
  Company Number: US-JNJFOC-20040305439

PATIENT

DRUGS (3)
  1. ORTHO EVRA [Suspect]
     Indication: MENSTRUAL DISORDER
     Dosage: 1 DOSE(S), 3 IN 4 WEEK, TRANSDERMAL
     Route: 062
     Dates: start: 20030801, end: 20040201
  2. PRENATAL VITAMINS (PRENATAL VITAMINS) [Concomitant]
  3. ADVIL [Concomitant]

REACTIONS (2)
  - DEPRESSION [None]
  - UNEXPECTED THERAPEUTIC DRUG EFFECT [None]
